FAERS Safety Report 5632057-4 (Version None)
Quarter: 2008Q1

REPORT INFORMATION
  Report Type: 
  Country: None (occurrence: None)
  Receive Date: 20080220
  Receipt Date: 20080205
  Transmission Date: 20080703
  Serious: Yes (Congenital Anomaly)
  Sender: FDA-Public Use
  Company Number: A0662870A

PATIENT
  Sex: Male
  Weight: 2.9 kg

DRUGS (5)
  1. PAXIL [Suspect]
     Indication: DEPRESSION
     Dosage: 40MG PER DAY
     Dates: start: 20010122, end: 20040209
  2. PAROXETINE HCL [Suspect]
     Indication: DEPRESSION
     Dosage: 20MG PER DAY
     Dates: start: 20040209, end: 20060505
  3. PRENATAL VITAMINS [Concomitant]
     Dates: start: 20030101, end: 20040101
  4. NATALCARE PLUS [Concomitant]
     Dates: start: 20030101, end: 20040101
  5. CLINDAMYCIN HCL [Concomitant]
     Dates: start: 20031101

REACTIONS (9)
  - ATRIAL SEPTAL DEFECT [None]
  - BRONCHOPULMONARY DYSPLASIA [None]
  - CARDIAC MURMUR [None]
  - DRUG EXPOSURE DURING PREGNANCY [None]
  - MIXED RECEPTIVE-EXPRESSIVE LANGUAGE DISORDER [None]
  - PATENT DUCTUS ARTERIOSUS [None]
  - PULMONARY VALVE STENOSIS [None]
  - RESPIRATORY FAILURE [None]
  - SPEECH DISORDER DEVELOPMENTAL [None]
